FAERS Safety Report 18412941 (Version 1)
Quarter: 2020Q4

REPORT INFORMATION
  Report Type: Spontaneous
  Country: US (occurrence: US)
  Receive Date: 20201021
  Receipt Date: 20201021
  Transmission Date: 20210114
  Serious: Yes (Other)
  Sender: FDA-Public Use
  Company Number: US-GE HEALTHCARE LIFE SCIENCES-2020CSU005347

PATIENT
  Sex: Male

DRUGS (7)
  1. OMNISCAN [Suspect]
     Active Substance: GADODIAMIDE
     Indication: ABSCESS
     Dosage: UNK
     Route: 042
  2. OMNISCAN [Suspect]
     Active Substance: GADODIAMIDE
     Indication: MAGNETIC RESONANCE IMAGING
     Dosage: UNK, SINGLE
     Route: 042
     Dates: start: 2004, end: 2004
  3. OMNISCAN [Suspect]
     Active Substance: GADODIAMIDE
     Indication: FASCIITIS
  4. OMNISCAN [Suspect]
     Active Substance: GADODIAMIDE
     Indication: MAGNETIC RESONANCE IMAGING BRAIN
     Dosage: UNK, SINGLE
     Route: 042
  5. OMNISCAN [Suspect]
     Active Substance: GADODIAMIDE
     Indication: FASCIITIS
  6. OMNISCAN [Suspect]
     Active Substance: GADODIAMIDE
     Indication: ENCEPHALOPATHY
  7. OMNISCAN [Suspect]
     Active Substance: GADODIAMIDE
     Indication: MAGNETIC RESONANCE IMAGING SPINAL
     Dosage: UNK
     Route: 042

REACTIONS (1)
  - Nephrogenic systemic fibrosis [Unknown]

NARRATIVE: CASE EVENT DATE: 200802
